FAERS Safety Report 12882999 (Version 2)
Quarter: 2025Q1

REPORT INFORMATION
  Report Type: Spontaneous
  Country: US (occurrence: US)
  Receive Date: 20161025
  Receipt Date: 20250307
  Transmission Date: 20250409
  Serious: No
  Sender: SANOFI AVENTIS
  Company Number: US-SA-2016SA105057

PATIENT
  Age: 16 Year
  Sex: Male

DRUGS (2)
  1. LUMIZYME [Suspect]
     Active Substance: ALGLUCOSIDASE ALFA
     Indication: Glycogen storage disease type II
     Dosage: 750 MG,QOW
     Route: 041
     Dates: start: 2011
  2. HUMIRA [Concomitant]
     Active Substance: ADALIMUMAB
     Indication: Chronic recurrent multifocal osteomyelitis

REACTIONS (1)
  - Scoliosis [Unknown]
